FAERS Safety Report 20844056 (Version 1)
Quarter: 2022Q2

REPORT INFORMATION
  Report Type: Other
  Country: GB (occurrence: GB)
  Receive Date: 20220518
  Receipt Date: 20220518
  Transmission Date: 20220721
  Serious: Yes (Other)
  Sender: FDA-Public Use
  Company Number: None

PATIENT

DRUGS (2)
  1. TOPIRAMATE [Interacting]
     Active Substance: TOPIRAMATE
     Indication: Eating disorder
     Dosage: 50 MG, UNK
     Route: 048
     Dates: start: 201904
  2. CANNABIS SATIVA SUBSP. INDICA TOP [Interacting]
     Active Substance: CANNABIS SATIVA SUBSP. INDICA TOP
     Indication: Substance use
     Dosage: 10 G, UNK
     Route: 048
     Dates: start: 20191130, end: 20191130

REACTIONS (4)
  - Hallucination [Recovered/Resolved]
  - Drug interaction [Unknown]
  - Tremor [Recovered/Resolved]
  - Hypoaesthesia [Recovered/Resolved]

NARRATIVE: CASE EVENT DATE: 20191130
